FAERS Safety Report 16358236 (Version 2)
Quarter: 2020Q2

REPORT INFORMATION
  Report Type: Spontaneous
  Country: US (occurrence: US)
  Receive Date: 20190527
  Receipt Date: 20200528
  Transmission Date: 20200713
  Serious: No
  Sender: FDA-Public Use
  Company Number: US-ELI_LILLY_AND_COMPANY-US201905011020

PATIENT
  Age: 65 Year
  Sex: Female

DRUGS (6)
  1. HUMALOG [Suspect]
     Active Substance: INSULIN LISPRO
     Indication: TYPE 2 DIABETES MELLITUS
     Dosage: UNK, VIA SLIDING SCALE
     Route: 058
     Dates: start: 2014
  2. HUMALOG [Suspect]
     Active Substance: INSULIN LISPRO
     Dosage: UNK, VIA SLIDING SCALE
     Route: 058
  3. HUMALOG [Suspect]
     Active Substance: INSULIN LISPRO
     Dosage: UNK, VIA SLIDING SCALE
     Route: 058
  4. LANTUS [Concomitant]
     Active Substance: INSULIN GLARGINE
     Indication: TYPE 2 DIABETES MELLITUS
     Dosage: 36 U, UNKNOWN
     Route: 065
  5. HUMALOG [Suspect]
     Active Substance: INSULIN LISPRO
     Indication: TYPE 2 DIABETES MELLITUS
     Dosage: UNK, VIA SLIDING SCALE
     Route: 058
     Dates: start: 2014
  6. HUMALOG [Suspect]
     Active Substance: INSULIN LISPRO
     Dosage: UNK, VIA SLIDING SCALE
     Route: 058

REACTIONS (25)
  - Neuropathy peripheral [Not Recovered/Not Resolved]
  - Mobility decreased [Not Recovered/Not Resolved]
  - Back disorder [Not Recovered/Not Resolved]
  - Burning sensation [Not Recovered/Not Resolved]
  - Insomnia [Not Recovered/Not Resolved]
  - Paraesthesia [Not Recovered/Not Resolved]
  - Dry skin [Not Recovered/Not Resolved]
  - Intervertebral disc protrusion [Not Recovered/Not Resolved]
  - Muscle spasms [Not Recovered/Not Resolved]
  - Cognitive disorder [Not Recovered/Not Resolved]
  - Pain in extremity [Not Recovered/Not Resolved]
  - Drug hypersensitivity [Not Recovered/Not Resolved]
  - Drug ineffective [Not Recovered/Not Resolved]
  - Arthralgia [Not Recovered/Not Resolved]
  - Muscle fatigue [Not Recovered/Not Resolved]
  - Memory impairment [Not Recovered/Not Resolved]
  - Pruritus [Not Recovered/Not Resolved]
  - Blood glucose decreased [Unknown]
  - Thinking abnormal [Not Recovered/Not Resolved]
  - Cerebral disorder [Not Recovered/Not Resolved]
  - Sciatica [Not Recovered/Not Resolved]
  - Myalgia [Not Recovered/Not Resolved]
  - Overweight [Not Recovered/Not Resolved]
  - Hypoaesthesia [Not Recovered/Not Resolved]
  - Abulia [Not Recovered/Not Resolved]

NARRATIVE: CASE EVENT DATE: 201812
